FAERS Safety Report 4784933-2 (Version None)
Quarter: 2005Q3

REPORT INFORMATION
  Report Type: 
  Country: None (occurrence: None)
  Receive Date: 20050928
  Receipt Date: 20050912
  Transmission Date: 20060218
  Serious: Yes (Hospitalization, Other)
  Sender: FDA-Public Use
  Company Number: US_0504115756

PATIENT
  Age: 45 Year
  Sex: Female
  Weight: 84 kg

DRUGS (20)
  1. ZYPREXA [Suspect]
     Indication: DEPRESSION
     Dosage: 20 MG AT BEDTIME
     Dates: start: 19980901
  2. SEROQUEL [Concomitant]
  3. CELEXA [Concomitant]
  4. LEXAPRO [Concomitant]
  5. PREVACID [Concomitant]
  6. LASIX [Concomitant]
  7. FLAGYL [Concomitant]
  8. LISINOPRIL [Concomitant]
  9. DICYCLOMINE [Concomitant]
  10. NORVASC [Concomitant]
  11. ALLEGRA [Concomitant]
  12. SOMA [Concomitant]
  13. POTASSIUM CHLORIDE [Concomitant]
  14. BIAXIN [Concomitant]
  15. METHYLPREDNISOLONE [Concomitant]
  16. HYDROCODONE [Concomitant]
  17. TEMAZEPAM [Concomitant]
  18. REMERON [Concomitant]
  19. CLONIDINE [Concomitant]
  20. TOPROL-XL [Concomitant]

REACTIONS (13)
  - ABDOMINAL PAIN [None]
  - ABDOMINAL PAIN LOWER [None]
  - BLOOD GLUCOSE INCREASED [None]
  - BLOOD TRIGLYCERIDES INCREASED [None]
  - CHOLECYSTITIS [None]
  - DIABETES MELLITUS NON-INSULIN-DEPENDENT [None]
  - DIVERTICULUM [None]
  - GASTROINTESTINAL HAEMORRHAGE [None]
  - HEPATIC STEATOSIS [None]
  - NAUSEA [None]
  - OEDEMA PERIPHERAL [None]
  - PANCREATITIS [None]
  - VOMITING [None]
